FAERS Safety Report 6127330-X (Version None)
Quarter: 2009Q1

REPORT INFORMATION
  Report Type: 
  Country: None (occurrence: None)
  Receive Date: 20090319
  Receipt Date: 20090305
  Transmission Date: 20090719
  Serious: Yes (Life-Threatening, Hospitalization)
  Sender: FDA-Public Use
  Company Number: TPA2008A02129

PATIENT
  Age: 50 Year
  Sex: Female
  Weight: 149.2334 kg

DRUGS (6)
  1. ACTOS [Suspect]
     Indication: DIABETES MELLITUS INADEQUATE CONTROL
     Dosage: 30 MG, 1 IN 1 D, PER ORAL
     Route: 048
     Dates: start: 20071001, end: 20081001
  2. ACTOS [Suspect]
     Indication: TYPE 2 DIABETES MELLITUS
     Dosage: 30 MG, 1 IN 1 D, PER ORAL
     Route: 048
     Dates: start: 20071001, end: 20081001
  3. GLUCOPHAGE XR [Concomitant]
  4. SINGULAIR [Concomitant]
  5. CLARINEX [Concomitant]
  6. PREVACID [Concomitant]

REACTIONS (2)
  - PERICARDIAL EFFUSION [None]
  - WEIGHT INCREASED [None]
